FAERS Safety Report 8489828-9 (Version None)
Quarter: 2012Q3

REPORT INFORMATION
  Report Type: 
  Country: None (occurrence: None)
  Receive Date: 20120705
  Receipt Date: 20120625
  Transmission Date: 20120928
  Serious: Yes (Death, Hospitalization)
  Sender: FDA-Public Use
  Company Number: JP-ACTELION-A-CH2012-67821

PATIENT
  Sex: Female
  Weight: 51.8 kg

DRUGS (13)
  1. TRACLEER [Suspect]
     Dosage: 31.25 MG, BID
     Route: 048
     Dates: start: 20120320, end: 20120326
  2. DIGOXIN [Concomitant]
  3. FAMOTIDINE [Concomitant]
  4. TRACLEER [Suspect]
     Dosage: 93.75 MG, BID
     Route: 048
     Dates: start: 20120403, end: 20120408
  5. SPIRONOLACTONE [Concomitant]
  6. SILDENAFIL CITRATE [Concomitant]
  7. TRACLEER [Suspect]
     Indication: PULMONARY HYPERTENSION
     Dosage: 62.5 MG, BID
     Route: 048
     Dates: start: 20120327, end: 20120402
  8. OXYGEN [Concomitant]
  9. BERAPROST SODIUM [Concomitant]
  10. WARFARIN POTASSIUM [Concomitant]
  11. BENZBROMARONE [Concomitant]
  12. MAGNESIUM OXIDE [Concomitant]
  13. FUROSEMIDE [Concomitant]

REACTIONS (5)
  - RESTLESSNESS [None]
  - CARDIAC FAILURE [None]
  - OXYGEN SATURATION DECREASED [None]
  - PULMONARY HYPERTENSION [None]
  - WEIGHT INCREASED [None]
